FAERS Safety Report 7689655-6 (Version None)
Quarter: 2011Q3

REPORT INFORMATION
  Report Type: 
  Country: None (occurrence: None)
  Receive Date: 20110817
  Receipt Date: 20110812
  Transmission Date: 20111222
  Serious: Yes (Other)
  Sender: FDA-Public Use
  Company Number: US-ROCHE-797075

PATIENT
  Sex: Female

DRUGS (2)
  1. PEGINTERFERON ALFA-2A [Suspect]
     Route: 065
     Dates: start: 20110803
  2. RIBAVIRIN [Suspect]
     Route: 065
     Dates: start: 20110803

REACTIONS (1)
  - NEUTROPHIL COUNT ABNORMAL [None]
